FAERS Safety Report 24773064 (Version 1)
Quarter: 2024Q4

REPORT INFORMATION
  Report Type: Spontaneous
  Country: US (occurrence: US)
  Receive Date: 20241225
  Receipt Date: 20241225
  Transmission Date: 20250115
  Serious: Yes (Other)
  Sender: AMGEN
  Company Number: US-AMGEN-USASP2024251924

PATIENT

DRUGS (1)
  1. BEVACIZUMAB [Suspect]
     Active Substance: BEVACIZUMAB
     Indication: Diabetic retinopathy
     Dosage: UNK
     Route: 065

REACTIONS (7)
  - Vitreous haemorrhage [Unknown]
  - Posterior capsule opacification [Unknown]
  - Retinal detachment [Unknown]
  - Diabetic retinal oedema [Unknown]
  - Corneal oedema [Unknown]
  - Iris neovascularisation [Unknown]
  - Off label use [Unknown]
